FAERS Safety Report 21018547 (Version 1)
Quarter: 2022Q2

REPORT INFORMATION
  Report Type: Spontaneous
  Country: US (occurrence: None)
  Receive Date: 20220628
  Receipt Date: 20220628
  Transmission Date: 20220721
  Serious: No
  Sender: FDA-Public Use
  Company Number: None

PATIENT
  Age: 86 Year
  Sex: Male
  Weight: 90.72 kg

DRUGS (8)
  1. ELIGARD [Suspect]
     Active Substance: LEUPROLIDE ACETATE
     Indication: Prostate cancer
     Dosage: OTHER FREQUENCY : EVERY 6 MONTHS;?
     Route: 058
     Dates: start: 202201
  2. ELIGARD [Suspect]
     Active Substance: LEUPROLIDE ACETATE
     Indication: Senile osteoporosis
  3. ELIGARD [Suspect]
     Active Substance: LEUPROLIDE ACETATE
     Indication: Bone density abnormal
  4. ELIGARD [Suspect]
     Active Substance: LEUPROLIDE ACETATE
     Indication: Prostate cancer
  5. PROLIA [Suspect]
     Active Substance: DENOSUMAB
     Indication: Prostate cancer
     Dosage: OTHER FREQUENCY : EVERY 6 MONTHS ;?
     Route: 058
     Dates: start: 202203
  6. PROLIA [Suspect]
     Active Substance: DENOSUMAB
     Indication: Senile osteoporosis
  7. PROLIA [Suspect]
     Active Substance: DENOSUMAB
     Indication: Bone density abnormal
  8. PROLIA [Suspect]
     Active Substance: DENOSUMAB
     Indication: Prostate cancer

REACTIONS (1)
  - Coronary arterial stent insertion [None]
